FAERS Safety Report 7415346-2 (Version None)
Quarter: 2011Q2

REPORT INFORMATION
  Report Type: 
  Country: None (occurrence: None)
  Receive Date: 20110414
  Receipt Date: 20110406
  Transmission Date: 20111010
  Serious: Yes (Hospitalization, Other)
  Sender: FDA-Public Use
  Company Number: A0915378A

PATIENT
  Sex: Male

DRUGS (3)
  1. IMMUNE GLOBULIN INTRAVENOUS (HUMAN) [Concomitant]
  2. PROMACTA [Suspect]
     Dosage: 50MG PER DAY
     Dates: start: 20100901, end: 20101201
  3. CORTICOSTEROIDS [Concomitant]

REACTIONS (5)
  - THROMBOCYTOPENIA [None]
  - ATRIAL FIBRILLATION [None]
  - TIBIA FRACTURE [None]
  - DRUG INEFFECTIVE [None]
  - FIBULA FRACTURE [None]
